FAERS Safety Report 9494257 (Version 1)
Quarter: 2013Q3

REPORT INFORMATION
  Report Type: Spontaneous
  Country: US (occurrence: None)
  Receive Date: 20130828
  Receipt Date: 20130828
  Transmission Date: 20140515
  Serious: Yes (Other)
  Sender: FDA-Public Use
  Company Number: 163-21880-13082182

PATIENT
  Age: 59 Year
  Sex: Male
  Weight: 103.87 kg

DRUGS (11)
  1. REVLIMID [Suspect]
     Indication: PLASMA CELL MYELOMA
     Dosage: 10 MG, 21 IN 21 D, PO
     Route: 048
     Dates: start: 20100201
  2. LOMOTIL (LOMOTIL) (TABLETS) [Concomitant]
  3. BENZACLIN (BENZOYL PEROXIDE W/ CLINDAMYCIN) [Concomitant]
  4. LYRICA (PREGABALIN) (CAPSULES) [Concomitant]
  5. VICODIN ES (VICODIN) [Concomitant]
  6. METOPROLOL TARTRATE (METOPROLOL TARTRATE) (TABLETS) (METOPROLOL TARTRATE) [Concomitant]
  7. DOXYCYCLINE (DOXYCYCLINE) [Concomitant]
  8. CLINDAMYCIN PHOSPHATE (CLINDAMYCIN PHOSPHATE) [Concomitant]
  9. BUDESONIDE (BUDESONIDE) (ENTERIC-COATED TABLET) [Concomitant]
  10. ACIDOPHILUS (LACTOBACILLUS ACIDOPHILUS) (CAPSULES) [Concomitant]
  11. VITAMIN D (ERGOCALCIFEROL) (CAPSULES) [Concomitant]

REACTIONS (6)
  - Deafness [None]
  - Constipation [None]
  - Psoriasis [None]
  - Cough [None]
  - Influenza [None]
  - Colitis ulcerative [None]
